FAERS Safety Report 14068190 (Version 1)
Quarter: 2017Q4

REPORT INFORMATION
  Report Type: Spontaneous
  Country: US (occurrence: None)
  Receive Date: 20171010
  Receipt Date: 20171010
  Transmission Date: 20180321
  Serious: Yes (Other)
  Sender: FDA-Public Use
  Company Number: None

PATIENT
  Age: 72 Year
  Sex: Female
  Weight: 61.24 kg

DRUGS (11)
  1. FISH OIL [Concomitant]
     Active Substance: FISH OIL
  2. AMLODIPINE [Concomitant]
     Active Substance: AMLODIPINE BESYLATE
  3. CHLORTHALIDONE. [Concomitant]
     Active Substance: CHLORTHALIDONE
  4. CARVEDILOL. [Concomitant]
     Active Substance: CARVEDILOL
  5. TUMERIC [Concomitant]
     Active Substance: HERBALS\TURMERIC
  6. RED RICE YEAST [Concomitant]
     Active Substance: DIETARY SUPPLEMENT
  7. COQ10 [Concomitant]
     Active Substance: UBIDECARENONE
  8. MAGNESIUM [Concomitant]
     Active Substance: MAGNESIUM
  9. ALLEGRA [Concomitant]
     Active Substance: FEXOFENADINE HYDROCHLORIDE
  10. ESCITALOPRAM [Suspect]
     Active Substance: ESCITALOPRAM OXALATE
     Indication: ANXIETY
     Dosage: 1 PILL EVERY DAY BY MOUTH
     Route: 048
     Dates: start: 20161031, end: 201703
  11. ASPRIN [Concomitant]
     Active Substance: ASPIRIN

REACTIONS (2)
  - Conjunctivitis [None]
  - Vision blurred [None]

NARRATIVE: CASE EVENT DATE: 2016
